FAERS Safety Report 20411831 (Version 1)
Quarter: 2022Q1

REPORT INFORMATION
  Report Type: Spontaneous
  Country: US (occurrence: US)
  Receive Date: 20220201
  Receipt Date: 20220201
  Transmission Date: 20220424
  Serious: No
  Sender: FDA-Public Use
  Company Number: US-TEVA-2022-US-2002725

PATIENT
  Sex: Female

DRUGS (6)
  1. COPAXONE [Suspect]
     Active Substance: GLATIRAMER ACETATE
     Indication: Multiple sclerosis
     Route: 065
  2. ADVIL [Concomitant]
     Active Substance: IBUPROFEN
  3. ACETAMINOPHEN\HYDROCODONE [Concomitant]
     Active Substance: ACETAMINOPHEN\HYDROCODONE
  4. LORAZEPAM [Concomitant]
     Active Substance: LORAZEPAM
  5. METOPROLOL SUCCINATE [Concomitant]
     Active Substance: METOPROLOL SUCCINATE
  6. ELMIRON [Concomitant]
     Active Substance: PENTOSAN POLYSULFATE SODIUM

REACTIONS (2)
  - Injection site reaction [Unknown]
  - Chest discomfort [Unknown]
